FAERS Safety Report 14957537 (Version 1)
Quarter: 2018Q2

REPORT INFORMATION
  Report Type: Report from Study
  Country: US (occurrence: US)
  Receive Date: 20180531
  Receipt Date: 20180531
  Transmission Date: 20180711
  Serious: No
  Sender: FDA-Public Use
  Company Number: US-THERATECHNOLOGIES, INC.-TH-2018-00278

PATIENT

DRUGS (20)
  1. CYCLOBENZAPRINE. [Concomitant]
     Active Substance: CYCLOBENZAPRINE
     Dosage: UNK
  2. CELECOXIB. [Concomitant]
     Active Substance: CELECOXIB
     Dosage: UNK
  3. ATORVASTATIN [Concomitant]
     Active Substance: ATORVASTATIN
     Dosage: UNK
  4. EGRIFTA [Suspect]
     Active Substance: TESAMORELIN
     Indication: ACQUIRED IMMUNODEFICIENCY SYNDROME
  5. IRON [Concomitant]
     Active Substance: IRON
     Dosage: UNK
  6. PRAZOSIN HCL [Concomitant]
     Active Substance: PRAZOSIN HYDROCHLORIDE
     Dosage: UNK
  7. METFORMIN [Concomitant]
     Active Substance: METFORMIN HYDROCHLORIDE
     Dosage: UNK
  8. OTHER THERAPEUTIC PRODUCTS [Concomitant]
     Active Substance: UNSPECIFIED INGREDIENT
     Dosage: UNK
  9. EGRIFTA [Suspect]
     Active Substance: TESAMORELIN
     Indication: HIV INFECTION
     Dosage: 1 MG MILLIGRAM(S), DAILY DOSE
     Route: 058
     Dates: start: 201804
  10. MULTIVITAMIN                       /00097801/ [Concomitant]
     Active Substance: VITAMINS
     Dosage: UNK
  11. FENOFIBRATE. [Concomitant]
     Active Substance: FENOFIBRATE
     Dosage: UNK
  12. FISH OIL [Concomitant]
     Active Substance: FISH OIL
     Dosage: UNK
  13. DULOXETINE. [Concomitant]
     Active Substance: DULOXETINE
     Dosage: UNK
  14. GABAPENTIN. [Concomitant]
     Active Substance: GABAPENTIN
     Dosage: UNK
  15. LOPERAMIDE [Concomitant]
     Active Substance: LOPERAMIDE
     Dosage: UNK
  16. LYRICA [Concomitant]
     Active Substance: PREGABALIN
     Dosage: UNK
  17. ZOLPIDEM [Concomitant]
     Active Substance: ZOLPIDEM\ZOLPIDEM TARTRATE
     Dosage: UNK
  18. IBU [Concomitant]
     Active Substance: IBUPROFEN
     Dosage: UNK
  19. TRAMADOL. [Concomitant]
     Active Substance: TRAMADOL
     Dosage: UNK
  20. BUSPIRON                           /00791501/ [Concomitant]
     Active Substance: BUTYLSCOPOLAMINE BROMIDE\METAMIZOLE SODIUM
     Dosage: UNK

REACTIONS (1)
  - Drug dose omission [Not Recovered/Not Resolved]

NARRATIVE: CASE EVENT DATE: 201805
